FAERS Safety Report 24109699 (Version 2)
Quarter: 2024Q3

REPORT INFORMATION
  Report Type: Spontaneous
  Country: IT (occurrence: IT)
  Receive Date: 20240718
  Receipt Date: 20240725
  Transmission Date: 20241016
  Serious: Yes (Death, Life-Threatening, Other)
  Sender: PFIZER
  Company Number: None

PATIENT
  Age: 66 Year
  Sex: Female

DRUGS (6)
  1. HEPARIN SODIUM [Suspect]
     Active Substance: HEPARIN SODIUM
     Indication: Thrombosis prophylaxis
     Dosage: 5000 IU + 2500 IUI INTRAOPERATIVELY IN THE PRE-CLASSAGE ANTICOAGULATION PHASE
     Route: 042
     Dates: start: 20240502, end: 20240502
  2. ALLOPURINOL [Concomitant]
     Active Substance: ALLOPURINOL
  3. EZETIMIBE\SIMVASTATIN [Concomitant]
     Active Substance: EZETIMIBE\SIMVASTATIN
  4. ASPIRIN [Concomitant]
     Active Substance: ASPIRIN
  5. OZEMPIC [Concomitant]
     Active Substance: SEMAGLUTIDE
  6. PREGABALIN [Concomitant]
     Active Substance: PREGABALIN

REACTIONS (5)
  - Drug ineffective [Fatal]
  - Multiple organ dysfunction syndrome [Fatal]
  - Vascular graft thrombosis [Fatal]
  - Anuria [Unknown]
  - Hyperkalaemia [Unknown]

NARRATIVE: CASE EVENT DATE: 20240501
